FAERS Safety Report 4634663-2 (Version None)
Quarter: 2005Q2

REPORT INFORMATION
  Report Type: 
  Country: None (occurrence: None)
  Receive Date: 20050411
  Receipt Date: 20050329
  Transmission Date: 20051028
  Serious: Yes (Hospitalization)
  Sender: FDA-Public Use
  Company Number: SUSI-2005-00161

PATIENT
  Age: 16 Year
  Sex: Female

DRUGS (1)
  1. PENTASA [Suspect]
     Indication: COLITIS ULCERATIVE
     Dosage: 750 MG, 3X/DAY, TID, ORAL
     Route: 048
     Dates: start: 20041226, end: 20050124

REACTIONS (4)
  - ALVEOLITIS ALLERGIC [None]
  - COUGH [None]
  - PHARYNGOLARYNGEAL PAIN [None]
  - PYREXIA [None]
